FAERS Safety Report 5836422-1 (Version None)
Quarter: 2008Q3

REPORT INFORMATION
  Report Type: 
  Country: None (occurrence: None)
  Receive Date: 20080806
  Receipt Date: 20080806
  Transmission Date: 20090109
  Serious: Yes (Hospitalization)
  Sender: FDA-Public Use
  Company Number: None

PATIENT
  Age: 31 Year
  Sex: Female
  Weight: 67 kg

DRUGS (7)
  1. ZERIT [Suspect]
     Indication: HIV INFECTION
     Dosage: 40 MG BD PO
     Route: 048
     Dates: start: 20060104, end: 20070228
  2. EPIVIR [Suspect]
     Indication: HIV INFECTION
     Dosage: 150 MG BD PO
     Route: 048
     Dates: start: 20060104, end: 20080611
  3. VIRAMUNE [Suspect]
     Indication: HIV INFECTION
     Dosage: 200 MG BD PO
     Route: 048
     Dates: start: 20060104, end: 20080611
  4. RETROVIR [Suspect]
     Indication: HIV INFECTION
     Dosage: 300 MG BD PO
     Route: 048
     Dates: start: 20070508, end: 20080611
  5. BACTRIM [Concomitant]
  6. VITAMIN B COMPLEX CAP [Concomitant]
  7. VITAMIN TAB [Concomitant]

REACTIONS (10)
  - BLOOD CREATININE DECREASED [None]
  - BLOOD UREA DECREASED [None]
  - CAESAREAN SECTION [None]
  - DRUG EXPOSURE DURING PREGNANCY [None]
  - HYPERLACTACIDAEMIA [None]
  - INTRA-UTERINE DEATH [None]
  - PREGNANCY WITH CONTRACEPTIVE DEVICE [None]
  - PREGNANCY WITH INJECTABLE CONTRACEPTIVE [None]
  - RED BLOOD CELL COUNT DECREASED [None]
  - UTERINE INFECTION [None]
